FAERS Safety Report 4892483-8 (Version None)
Quarter: 2006Q1

REPORT INFORMATION
  Report Type: 
  Country: None (occurrence: None)
  Receive Date: 20060126
  Receipt Date: 20051219
  Transmission Date: 20060701
  Serious: No
  Sender: FDA-Public Use
  Company Number: US-BRISTOL-MYERS SQUIBB COMPANY-13221304

PATIENT
  Sex: Female

DRUGS (1)
  1. CEFZIL [Suspect]
     Route: 048

REACTIONS (1)
  - DIARRHOEA [None]
